FAERS Safety Report 8859656 (Version 1)
Quarter: 2012Q4

REPORT INFORMATION
  Report Type: 
  Country: US (occurrence: US)
  Receive Date: 20121025
  Receipt Date: 20121025
  Transmission Date: 20130627
  Serious: Yes (Hospitalization)
  Sender: FDA-Public Use
  Company Number: US-ACTELION-A-NJ2012-72977

PATIENT
  Age: 85 Year
  Sex: Female

DRUGS (1)
  1. TRACLEER [Suspect]
     Indication: PULMONARY ARTERIAL HYPERTENSION
     Dosage: UNK
     Route: 048

REACTIONS (7)
  - Blood glucose decreased [Unknown]
  - Syncope [Unknown]
  - Anaemia [Unknown]
  - Transfusion [Unknown]
  - Dyspnoea [Unknown]
  - Oedema peripheral [Unknown]
  - Weight increased [Unknown]
